FAERS Safety Report 16719121 (Version 1)
Quarter: 2019Q3

REPORT INFORMATION
  Report Type: Spontaneous
  Country: FR (occurrence: FR)
  Receive Date: 20190820
  Receipt Date: 20190820
  Transmission Date: 20191005
  Serious: Yes (Death)
  Sender: FDA-Public Use
  Company Number: FR-SUN PHARMACEUTICAL INDUSTRIES LTD-2019RR-218094

PATIENT
  Age: 97 Year
  Sex: Male

DRUGS (2)
  1. TRAMADOL. [Suspect]
     Active Substance: TRAMADOL
     Indication: PAIN
     Dosage: 300 MILLIGRAM, DAILY
     Route: 048
     Dates: start: 20190713, end: 20190718
  2. PREVISCAN 20 MG, COMPRIME SECABLE [Interacting]
     Active Substance: FLUINDIONE
     Indication: ATRIAL FIBRILLATION
     Dosage: 0.5 DOSAGE FORM, DAILY
     Route: 048

REACTIONS (1)
  - Haemorrhagic stroke [Fatal]
